FAERS Safety Report 9691031 (Version 1)
Quarter: 2013Q4

REPORT INFORMATION
  Report Type: Spontaneous
  Country: PL (occurrence: PL)
  Receive Date: 20131115
  Receipt Date: 20131115
  Transmission Date: 20140711
  Serious: Yes (Disabling, Other)
  Sender: FDA-Public Use
  Company Number: PL-ELI_LILLY_AND_COMPANY-PL201311002729

PATIENT
  Sex: Female
  Weight: 120 kg

DRUGS (2)
  1. ZYPREXA [Suspect]
     Indication: SCHIZOPHRENIA
     Dosage: 5 MG, UNKNOWN
     Route: 048
     Dates: start: 2003
  2. ACETYLSALICYLIC ACID [Concomitant]
     Indication: MIGRAINE
     Dosage: 1 G, PRN
     Route: 048

REACTIONS (4)
  - Cataract [Unknown]
  - Metabolic syndrome [Unknown]
  - Spinal osteoarthritis [Unknown]
  - Intentional drug misuse [Unknown]
